FAERS Safety Report 7564882-7 (Version None)
Quarter: 2011Q2

REPORT INFORMATION
  Report Type: 
  Country: None (occurrence: None)
  Receive Date: 20110622
  Receipt Date: 20110414
  Transmission Date: 20111010
  Serious: Yes (Other)
  Sender: FDA-Public Use
  Company Number: US-MYLANLABS-2011S1001875

PATIENT
  Age: 34 Year
  Sex: Male

DRUGS (3)
  1. CLOZAPINE [Suspect]
     Dates: start: 20100901, end: 20110218
  2. LITHIUM CARBONATE [Concomitant]
     Dosage: 300MG (2) IN THE MORNING AND (3) AT NIGHT
     Dates: start: 20100917, end: 20110214
  3. LAMOTRIGINE [Concomitant]
     Dates: start: 20090719, end: 20100917

REACTIONS (2)
  - GRANULOCYTOPENIA [None]
  - LEUKOPENIA [None]
